FAERS Safety Report 4858279-8 (Version None)
Quarter: 2005Q4

REPORT INFORMATION
  Report Type: 
  Country: None (occurrence: None)
  Receive Date: 20051219
  Receipt Date: 20050325
  Transmission Date: 20060501
  Serious: No
  Sender: FDA-Public Use
  Company Number: US-GLAXOSMITHKLINE-A0551387A

PATIENT
  Age: 47 Year
  Sex: Male

DRUGS (4)
  1. NICODERM CQ [Suspect]
     Dates: start: 20050203
  2. NICODERM CQ [Suspect]
     Dates: start: 20050203
  3. NICODERM CQ [Suspect]
     Dates: start: 20050203
  4. NICODERM CQ [Suspect]
     Dates: start: 20050203

REACTIONS (3)
  - HEADACHE [None]
  - NICOTINE DEPENDENCE [None]
  - WEIGHT DECREASED [None]
